FAERS Safety Report 22651620 (Version 1)
Quarter: 2023Q2

REPORT INFORMATION
  Report Type: Spontaneous
  Country: US (occurrence: US)
  Receive Date: 20230628
  Receipt Date: 20230628
  Transmission Date: 20230721
  Serious: Yes (Hospitalization)
  Sender: FDA-Public Use
  Company Number: US-CTI BIOPHARMA-2023US03467

PATIENT

DRUGS (2)
  1. VONJO [Suspect]
     Active Substance: PACRITINIB
     Indication: Myelofibrosis
     Dosage: 100 MG, BID
     Route: 048
     Dates: start: 20220328
  2. ASPIRIN [Suspect]
     Active Substance: ASPIRIN

REACTIONS (4)
  - Haemorrhage [Unknown]
  - Splenomegaly [Unknown]
  - Mood altered [Unknown]
  - Mobility decreased [Unknown]
